FAERS Safety Report 12551173 (Version 1)
Quarter: 2016Q3

REPORT INFORMATION
  Report Type: Spontaneous
  Country: GB (occurrence: GB)
  Receive Date: 20160713
  Receipt Date: 20160713
  Transmission Date: 20161109
  Serious: Yes (Hospitalization)
  Sender: FDA-Public Use
  Company Number: GB-ROCHE-1743637

PATIENT
  Sex: Female

DRUGS (1)
  1. HERCEPTIN [Suspect]
     Active Substance: TRASTUZUMAB
     Indication: PRODUCT USED FOR UNKNOWN INDICATION
     Route: 058

REACTIONS (8)
  - Nasal congestion [Unknown]
  - Infection [Unknown]
  - Fatigue [Unknown]
  - Oral pain [Unknown]
  - Breast inflammation [Unknown]
  - Epistaxis [Unknown]
  - Body temperature increased [Unknown]
  - Neuropathy peripheral [Unknown]
